FAERS Safety Report 14149054 (Version 5)
Quarter: 2019Q4

REPORT INFORMATION
  Report Type: Report from Study
  Country: AR (occurrence: AR)
  Receive Date: 20171101
  Receipt Date: 20191210
  Transmission Date: 20200122
  Serious: Yes (Other)
  Sender: FDA-Public Use
  Company Number: PHHY2017AR112038

PATIENT
  Age: 27 Year
  Sex: Female

DRUGS (11)
  1. COSENTYX [Suspect]
     Active Substance: SECUKINUMAB
     Dosage: 150 MG, Q2MO (EVERY 15 DAYS)
     Route: 058
     Dates: start: 20190929
  2. METHADONE [Concomitant]
     Active Substance: METHADONE HYDROCHLORIDE
     Indication: PRODUCT USED FOR UNKNOWN INDICATION
     Dosage: UNK
     Route: 065
  3. CELEBREX [Concomitant]
     Active Substance: CELECOXIB
     Indication: PRODUCT USED FOR UNKNOWN INDICATION
     Dosage: UNK
     Route: 065
  4. COSENTYX [Suspect]
     Active Substance: SECUKINUMAB
     Dosage: 150 MG, UNK
     Route: 065
     Dates: end: 20171019
  5. METHOTREXATE. [Suspect]
     Active Substance: METHOTREXATE
     Indication: PRODUCT USED FOR UNKNOWN INDICATION
     Route: 065
  6. COSENTYX [Suspect]
     Active Substance: SECUKINUMAB
     Indication: PSORIATIC ARTHROPATHY
     Dosage: UNK
     Route: 058
     Dates: start: 20170725
  7. ELIFER [Concomitant]
     Indication: PRODUCT USED FOR UNKNOWN INDICATION
     Dosage: UNK
     Route: 065
  8. FILARTROS [Concomitant]
     Active Substance: LEFLUNOMIDE
     Indication: PRODUCT USED FOR UNKNOWN INDICATION
     Dosage: UNK
     Route: 065
  9. AMITRIPTYLLIN [Concomitant]
     Active Substance: AMITRIPTYLINE HYDROCHLORIDE
     Indication: PRODUCT USED FOR UNKNOWN INDICATION
     Dosage: UNK
     Route: 065
  10. COSENTYX [Suspect]
     Active Substance: SECUKINUMAB
     Dosage: 150 MG, QW
     Route: 058
     Dates: start: 20170719
  11. SULFASALAZINE. [Concomitant]
     Active Substance: SULFASALAZINE
     Indication: PRODUCT USED FOR UNKNOWN INDICATION
     Dosage: UNK
     Route: 065

REACTIONS (17)
  - Heart rate increased [Not Recovered/Not Resolved]
  - Anaemia [Recovering/Resolving]
  - C-reactive protein abnormal [Recovering/Resolving]
  - Infection [Recovering/Resolving]
  - Spinal column injury [Unknown]
  - Inappropriate schedule of product administration [Unknown]
  - Angina pectoris [Recovering/Resolving]
  - Blood pressure increased [Recovering/Resolving]
  - Inflammation [Recovered/Resolved]
  - Dizziness [Recovering/Resolving]
  - Pyrexia [Unknown]
  - Arthralgia [Recovering/Resolving]
  - Arrhythmia [Unknown]
  - Pharyngitis [Recovering/Resolving]
  - Cardiac disorder [Recovering/Resolving]
  - Tonsillitis [Unknown]
  - Hypertension [Unknown]

NARRATIVE: CASE EVENT DATE: 201707
